FAERS Safety Report 23810247 (Version 1)
Quarter: 2024Q2

REPORT INFORMATION
  Report Type: Spontaneous
  Country: US (occurrence: None)
  Receive Date: 20240502
  Receipt Date: 20240502
  Transmission Date: 20240716
  Serious: No
  Sender: FDA-Public Use
  Company Number: 2024A032567

PATIENT
  Age: 1 Year
  Sex: Male

DRUGS (2)
  1. NIRSEVIMAB [Suspect]
     Active Substance: NIRSEVIMAB
     Dosage: DOSE NUMBER IN SERIES 2
     Route: 030
     Dates: start: 20231113
  2. INFLUENZA VIRUS VACCINE [Concomitant]
     Active Substance: INFLUENZA VIRUS VACCINE

REACTIONS (4)
  - Bronchopulmonary dysplasia [Recovered/Resolved]
  - Urticaria [Recovered/Resolved]
  - Rash [Recovered/Resolved]
  - Reaction to previous exposure to any vaccine [Recovered/Resolved]

NARRATIVE: CASE EVENT DATE: 20231114
